FAERS Safety Report 16709567 (Version 1)
Quarter: 2019Q3

REPORT INFORMATION
  Report Type: Spontaneous
  Country: US (occurrence: US)
  Receive Date: 20190701
  Receipt Date: 20190701
  Transmission Date: 20191004
  Serious: Yes (Hospitalization)
  Sender: FDA-Public Use
  Company Number: None

PATIENT
  Age: 63 Year
  Sex: Male
  Weight: 91 kg

DRUGS (1)
  1. VANCOMYCIN [Suspect]
     Active Substance: VANCOMYCIN
     Dates: start: 20190301, end: 20190417

REACTIONS (6)
  - Urticaria [None]
  - Joint swelling [None]
  - Swelling face [None]
  - Erythema multiforme [None]
  - Rash pruritic [None]
  - Peripheral swelling [None]

NARRATIVE: CASE EVENT DATE: 20190417
